FAERS Safety Report 9365156 (Version 1)
Quarter: 2013Q2

REPORT INFORMATION
  Report Type: Spontaneous
  Country: ES (occurrence: ES)
  Receive Date: 20130624
  Receipt Date: 20130624
  Transmission Date: 20140414
  Serious: Yes (Other)
  Sender: FDA-Public Use
  Company Number: PHHY2013ES064054

PATIENT
  Age: 39 Year
  Sex: Female

DRUGS (4)
  1. PACLITAXEL [Suspect]
     Indication: METASTASES TO LYMPH NODES
     Dosage: 80 MG/M2, ON DAYS 1, 8 AND 15
     Route: 042
  2. PACLITAXEL [Suspect]
     Indication: METASTASES TO BONE
  3. GEMCITABINE [Concomitant]
     Indication: METASTASES TO LYMPH NODES
     Dosage: 800 MG/M2, UNK
     Route: 042
  4. GEMCITABINE [Concomitant]
     Indication: METASTASES TO BONE

REACTIONS (2)
  - Cystoid macular oedema [Recovering/Resolving]
  - Blindness [Recovering/Resolving]
